FAERS Safety Report 7840727-2 (Version None)
Quarter: 2011Q4

REPORT INFORMATION
  Report Type: 
  Country: None (occurrence: None)
  Receive Date: 20111021
  Receipt Date: 20111021
  Transmission Date: 20120403
  Serious: Yes (Hospitalization)
  Sender: FDA-Public Use
  Company Number: None

PATIENT
  Sex: Male
  Weight: 55.4 kg

DRUGS (1)
  1. CISPLATIN [Suspect]
     Dosage: 155 MG
     Dates: end: 20071010

REACTIONS (9)
  - DYSPHAGIA [None]
  - METASTASES TO LUNG [None]
  - LUNG INFILTRATION [None]
  - DERMATITIS [None]
  - SYNCOPE [None]
  - TOXICITY TO VARIOUS AGENTS [None]
  - PNEUMONIA [None]
  - ODYNOPHAGIA [None]
  - SEPSIS [None]
